FAERS Safety Report 20301804 (Version 1)
Quarter: 2022Q1

REPORT INFORMATION
  Report Type: Spontaneous
  Country: US (occurrence: US)
  Receive Date: 20220105
  Receipt Date: 20220105
  Transmission Date: 20220423
  Serious: Yes (Other)
  Sender: FDA-Public Use
  Company Number: US-BEH-2021140119

PATIENT
  Age: 55 Year
  Sex: Female

DRUGS (1)
  1. HIZENTRA [Suspect]
     Active Substance: HUMAN IMMUNOGLOBULIN G
     Indication: Immunodeficiency common variable
     Dosage: 10 GRAM, QW
     Route: 058
     Dates: start: 202009

REACTIONS (5)
  - Rheumatoid arthritis [Unknown]
  - Infusion site mass [Not Recovered/Not Resolved]
  - Joint swelling [Unknown]
  - Eye swelling [Unknown]
  - Glomerular filtration rate abnormal [Unknown]

NARRATIVE: CASE EVENT DATE: 20211201
